FAERS Safety Report 20236710 (Version 4)
Quarter: 2022Q2

REPORT INFORMATION
  Report Type: Spontaneous
  Country: BE (occurrence: BE)
  Receive Date: 20211228
  Receipt Date: 20220408
  Transmission Date: 20220720
  Serious: Yes (Other)
  Sender: FDA-Public Use
  Company Number: BE-JNJFOC-20211238980

PATIENT

DRUGS (7)
  1. STELARA [Suspect]
     Active Substance: USTEKINUMAB
     Indication: Product used for unknown indication
     Route: 058
     Dates: start: 202101
  2. ENTOCORT [Suspect]
     Active Substance: BUDESONIDE
     Route: 065
     Dates: start: 2019
  3. ENTOCORT [Suspect]
     Active Substance: BUDESONIDE
     Route: 065
     Dates: start: 202011
  4. ENTOCORT [Suspect]
     Active Substance: BUDESONIDE
     Route: 065
     Dates: start: 202110
  5. ENTOCORT [Suspect]
     Active Substance: BUDESONIDE
     Route: 065
  6. METHOTREXATE [Suspect]
     Active Substance: METHOTREXATE
     Route: 065
     Dates: start: 2019
  7. METHOTREXATE [Suspect]
     Active Substance: METHOTREXATE
     Route: 065
     Dates: start: 202011

REACTIONS (2)
  - Follicular lymphoma [Not Recovered/Not Resolved]
  - Enteritis [Not Recovered/Not Resolved]
